FAERS Safety Report 10616162 (Version 1)
Quarter: 2014Q4

REPORT INFORMATION
  Report Type: Spontaneous
  Country: US (occurrence: None)
  Receive Date: 20141126
  Receipt Date: 20141126
  Transmission Date: 20150529
  Serious: Yes (Death, Hospitalization)
  Sender: FDA-Public Use
  Company Number: None

PATIENT
  Age: 21 Year
  Sex: Female
  Weight: 69 kg

DRUGS (6)
  1. ONCASPAR [Suspect]
     Active Substance: PEGASPARGASE
     Dates: start: 20140918
  2. CYTARABINE. [Suspect]
     Active Substance: CYTARABINE
     Dates: start: 20140915
  3. VINCRISTINE SULFATE. [Suspect]
     Active Substance: VINCRISTINE SULFATE
     Dates: start: 20141006
  4. METHOTREXATE [Suspect]
     Active Substance: METHOTREXATE
     Dates: start: 20140922
  5. DAUNORUBICIN [Suspect]
     Active Substance: DAUNORUBICIN
     Dates: start: 20140930
  6. PREDNISONE. [Suspect]
     Active Substance: PREDNISONE
     Dates: start: 20141006

REACTIONS (5)
  - Dialysis [None]
  - Hypotension [None]
  - Respiratory distress [None]
  - Multi-organ failure [None]
  - Ventricular tachycardia [None]

NARRATIVE: CASE EVENT DATE: 20141010
